FAERS Safety Report 22643258 (Version 1)
Quarter: 2023Q2

REPORT INFORMATION
  Report Type: Spontaneous
  Country: US (occurrence: None)
  Receive Date: 20230627
  Receipt Date: 20230627
  Transmission Date: 20230722
  Serious: Yes (Other)
  Sender: FDA-Public Use
  Company Number: US-ROCHE-3375850

PATIENT
  Sex: Female

DRUGS (20)
  1. RITUXAN [Suspect]
     Active Substance: RITUXIMAB
     Indication: Rheumatoid arthritis
     Dosage: 10 MG/ML
     Route: 041
  2. TYLENOL [Concomitant]
     Active Substance: ACETAMINOPHEN
  3. BACLOFEN [Concomitant]
     Active Substance: BACLOFEN
  4. DIPHENHYDRAMINE [Concomitant]
     Active Substance: DIPHENHYDRAMINE
  5. ERGOCALCIFEROL [Concomitant]
     Active Substance: ERGOCALCIFEROL
  6. EVOLOCUMAB [Concomitant]
     Active Substance: EVOLOCUMAB
  7. FAMOTIDINE [Concomitant]
     Active Substance: FAMOTIDINE
  8. FEXOFENADINE [Concomitant]
     Active Substance: FEXOFENADINE HYDROCHLORIDE
  9. ALLEGRA [Concomitant]
     Active Substance: FEXOFENADINE HYDROCHLORIDE
  10. FLONASE [Concomitant]
     Active Substance: FLUTICASONE PROPIONATE
  11. MUCINEX [Concomitant]
     Active Substance: GUAIFENESIN
  12. ZADITOR [Concomitant]
     Active Substance: KETOTIFEN FUMARATE
  13. CLARITIN [Concomitant]
     Active Substance: LORATADINE
  14. MYCOSTATIN [Concomitant]
     Active Substance: NYSTATIN
  15. NAPROXEN [Concomitant]
     Active Substance: NAPROXEN
     Route: 048
  16. METHYLPREDNISOLONE [Concomitant]
     Active Substance: METHYLPREDNISOLONE
  17. MELATONIN [Concomitant]
     Active Substance: MELATONIN
  18. SYNTHROID [Concomitant]
     Active Substance: LEVOTHYROXINE SODIUM
  19. ZOFRAN [Concomitant]
     Active Substance: ONDANSETRON HYDROCHLORIDE
  20. PANTOPRAZOLE [Concomitant]
     Active Substance: PANTOPRAZOLE

REACTIONS (6)
  - Migraine [Unknown]
  - Immunosuppression [Unknown]
  - Pleurisy [Unknown]
  - Vaginal prolapse [Unknown]
  - Uterine prolapse [Unknown]
  - Breast cancer [Unknown]
